FAERS Safety Report 8323081-1 (Version None)
Quarter: 2012Q2

REPORT INFORMATION
  Report Type: 
  Country: None (occurrence: None)
  Receive Date: 20120430
  Receipt Date: 20120420
  Transmission Date: 20120825
  Serious: Yes (Other)
  Sender: FDA-Public Use
  Company Number: US-VALEANT-2012VX001806

PATIENT
  Age: 21 Year
  Sex: Female

DRUGS (2)
  1. DALMANE [Suspect]
     Indication: SUICIDAL IDEATION
     Route: 048
     Dates: start: 20110501
  2. EFFEXOR XR [Suspect]
     Indication: SUICIDAL IDEATION
     Route: 048
     Dates: start: 20110501

REACTIONS (1)
  - PHYSICAL ASSAULT [None]
